FAERS Safety Report 6477434-7 (Version None)
Quarter: 2009Q4

REPORT INFORMATION
  Report Type: 
  Country: None (occurrence: None)
  Receive Date: 20091207
  Receipt Date: 20091012
  Transmission Date: 20100525
  Serious: Yes (Other)
  Sender: FDA-Public Use
  Company Number: AU-SANOFI-AVENTIS-2009SA000354

PATIENT
  Age: 58 Year
  Sex: Female

DRUGS (1)
  1. APIDRA [Suspect]

REACTIONS (1)
  - MYOCARDIAL INFARCTION [None]
